FAERS Safety Report 4551540-6 (Version None)
Quarter: 2005Q1

REPORT INFORMATION
  Report Type: 
  Country: None (occurrence: None)
  Receive Date: 20050111
  Receipt Date: 20041230
  Transmission Date: 20050727
  Serious: Yes (Other)
  Sender: FDA-Public Use
  Company Number: 9565

PATIENT
  Age: 14 Year
  Sex: Male

DRUGS (1)
  1. METHOTREXATE [Suspect]
     Indication: ACUTE LYMPHOCYTIC LEUKAEMIA

REACTIONS (3)
  - CEREBROVASCULAR ACCIDENT [None]
  - CHEMOTHERAPY NEUROTOXICITY ATTENUATION [None]
  - ENCEPHALOPATHY [None]
